FAERS Safety Report 9751691 (Version 3)
Quarter: 2013Q4

REPORT INFORMATION
  Report Type: Report from Study
  Country: US (occurrence: US)
  Receive Date: 20131213
  Receipt Date: 20131231
  Transmission Date: 20140711
  Serious: Yes (Other)
  Sender: FDA-Public Use
  Company Number: US-ROCHE-1305432

PATIENT
  Sex: Female

DRUGS (8)
  1. LUCENTIS [Suspect]
     Indication: RETINAL VEIN OCCLUSION
     Dosage: LEFT EYE
     Route: 050
  2. TRAVATAN [Concomitant]
     Dosage: EYE DROPS
     Route: 065
  3. ATENOLOL [Concomitant]
  4. ALPHAGAN [Concomitant]
     Dosage: EYE DROPS
     Route: 065
  5. XARELTO [Concomitant]
  6. LOVASTATIN [Concomitant]
  7. LORTAB [Concomitant]
  8. AMLODIPINE BESYLATE [Concomitant]

REACTIONS (3)
  - Blindness unilateral [Unknown]
  - Visual acuity reduced [Unknown]
  - Drug ineffective [Unknown]
